APPROVED DRUG PRODUCT: OXYCODONE HYDROCHLORIDE AND ACETAMINOPHEN
Active Ingredient: ACETAMINOPHEN; OXYCODONE HYDROCHLORIDE
Strength: 325MG/5ML;5MG/5ML
Dosage Form/Route: SOLUTION;ORAL
Application: A203573 | Product #001
Applicant: PH HEALTH LTD
Approved: Dec 18, 2014 | RLD: No | RS: No | Type: DISCN